FAERS Safety Report 4661331-3 (Version None)
Quarter: 2005Q2

REPORT INFORMATION
  Report Type: 
  Country: None (occurrence: None)
  Receive Date: 20050427
  Receipt Date: 20050117
  Transmission Date: 20051028
  Serious: Yes (Hospitalization, Other)
  Sender: FDA-Public Use
  Company Number: WAES 0501USA02587

PATIENT
  Age: 63 Year
  Sex: Female
  Weight: 82.1011 kg

DRUGS (9)
  1. EMEND [Suspect]
     Indication: NAUSEA
     Dosage: 125 MG/1X/PO; 80 MG/DAILY/PO
     Route: 048
     Dates: start: 20050110, end: 20050110
  2. EMEND [Suspect]
     Indication: NAUSEA
     Dosage: 125 MG/1X/PO; 80 MG/DAILY/PO
     Route: 048
     Dates: start: 20050111, end: 20050112
  3. DECADRON (DEXAMETHSONE) [Concomitant]
  4. LIPITOR [Concomitant]
  5. PRILOSEC [Concomitant]
  6. SYNTHROID [Concomitant]
  7. ANTINEOPLASTIC [Concomitant]
  8. DOXORUBICIN [Concomitant]
  9. PALONOSETRON HYDROCHLORIDE [Concomitant]

REACTIONS (1)
  - DEEP VEIN THROMBOSIS [None]
